FAERS Safety Report 9772589 (Version 1)
Quarter: 2013Q4

REPORT INFORMATION
  Report Type: Report from Study
  Country: US (occurrence: US)
  Receive Date: 20131219
  Receipt Date: 20131219
  Transmission Date: 20140711
  Serious: Yes (Other)
  Sender: FDA-Public Use
  Company Number: US-JNJFOC-20131208423

PATIENT
  Age: 53 Year
  Sex: Female

DRUGS (1)
  1. SIMPONI ARIA [Suspect]
     Indication: PRODUCT USED FOR UNKNOWN INDICATION
     Route: 042
     Dates: start: 201309, end: 201310

REACTIONS (1)
  - Nonspecific reaction [Unknown]
